FAERS Safety Report 6648974-2 (Version None)
Quarter: 2010Q1

REPORT INFORMATION
  Report Type: 
  Country: None (occurrence: None)
  Receive Date: 20100324
  Receipt Date: 20100317
  Transmission Date: 20100710
  Serious: Yes (Hospitalization, Disabling, Other)
  Sender: FDA-Public Use
  Company Number: US-MERCK-0712USA02113

PATIENT
  Age: 48 Year
  Sex: Female

DRUGS (2)
  1. FOSAMAX [Suspect]
     Indication: OSTEOPOROSIS
     Route: 048
     Dates: start: 19960101, end: 19970501
  2. PREMARIN [Concomitant]
     Indication: OSTEOPOROSIS
     Route: 065
     Dates: start: 19840101

REACTIONS (24)
  - ANXIETY [None]
  - ARTHRALGIA [None]
  - ARTHROPATHY [None]
  - BACK PAIN [None]
  - BRUXISM [None]
  - DEPRESSION [None]
  - FISTULA [None]
  - GASTROOESOPHAGEAL REFLUX DISEASE [None]
  - HEADACHE [None]
  - HEPATITIS C [None]
  - INTERVERTEBRAL DISC DEGENERATION [None]
  - JAW FRACTURE [None]
  - JOINT EFFUSION [None]
  - MALAISE [None]
  - NECK PAIN [None]
  - OSTEOCHONDROSIS [None]
  - OSTEONECROSIS [None]
  - PAIN [None]
  - RECTOCELE [None]
  - ROAD TRAFFIC ACCIDENT [None]
  - SCIATICA [None]
  - STOMATITIS [None]
  - STRESS URINARY INCONTINENCE [None]
  - TOOTH DISORDER [None]
